FAERS Safety Report 5758380-0 (Version None)
Quarter: 2008Q2

REPORT INFORMATION
  Report Type: 
  Country: None (occurrence: None)
  Receive Date: 20080602
  Receipt Date: 20080602
  Transmission Date: 20081010
  Serious: Yes (Hospitalization, Other)
  Sender: FDA-Public Use
  Company Number: None

PATIENT
  Age: 74 Year
  Sex: Male
  Weight: 70.7 kg

DRUGS (8)
  1. BORTEZOMIB [Suspect]
     Indication: MANTLE CELL LYMPHOMA
     Dosage: 2.4MG D1+4 IV
     Route: 042
     Dates: start: 20080505
  2. BORTEZOMIB [Suspect]
     Indication: MANTLE CELL LYMPHOMA
     Dosage: 2.4MG D1+4 IV
     Route: 042
     Dates: start: 20080508
  3. CYCLOPHOSPHAMIDE [Suspect]
     Indication: MANTLE CELL LYMPHOMA
     Dosage: 555 MG D1,2,3 IV
     Route: 042
     Dates: start: 20080506, end: 20080508
  4. RITUXAN [Suspect]
     Dosage: 695 MG IV DAY 1
     Route: 042
     Dates: start: 20080505
  5. DOXORUBICIN HCL [Suspect]
     Dosage: 46 MG D1-2  CIV
     Route: 042
     Dates: start: 20080506
  6. DOXORUBICIN HCL [Suspect]
     Dosage: 46 MG D1-2  CIV
     Route: 042
     Dates: start: 20080507
  7. DEXAMETHASONE TAB [Suspect]
     Dosage: 40MG PO 1-4, IV
     Route: 048
     Dates: start: 20080505, end: 20080508
  8. VINCRISTINE [Suspect]
     Dosage: 1MG D3 IV
     Route: 042
     Dates: start: 20080508

REACTIONS (2)
  - BLOOD CREATININE INCREASED [None]
  - RENAL INJURY [None]
